FAERS Safety Report 7186409-4 (Version None)
Quarter: 2010Q4

REPORT INFORMATION
  Report Type: 
  Country: None (occurrence: None)
  Receive Date: 20101222
  Receipt Date: 20100621
  Transmission Date: 20110411
  Serious: Yes (Other)
  Sender: FDA-Public Use
  Company Number: US-AMGEN-KDL419949

PATIENT

DRUGS (2)
  1. ENBREL [Suspect]
     Indication: ANKYLOSING SPONDYLITIS
     Dosage: UNK UNK, UNK
     Dates: start: 20000531
  2. METHOTREXATE [Concomitant]

REACTIONS (5)
  - CELLULITIS [None]
  - LARGE INTESTINE PERFORATION [None]
  - PLANTAR FASCIITIS [None]
  - SINUSITIS [None]
  - URINARY TRACT INFECTION [None]
